FAERS Safety Report 4777548-3 (Version None)
Quarter: 2005Q3

REPORT INFORMATION
  Report Type: 
  Country: None (occurrence: None)
  Receive Date: 20050915
  Receipt Date: 20050901
  Transmission Date: 20060218
  Serious: Yes (Hospitalization)
  Sender: FDA-Public Use
  Company Number: 194285

PATIENT
  Age: 52 Year
  Sex: Female
  Weight: 69.4003 kg

DRUGS (9)
  1. AVONEX [Suspect]
     Indication: MULTIPLE SCLEROSIS
     Dosage: 30 UG QW IM
     Route: 030
     Dates: start: 19971201
  2. AVONEX [Suspect]
     Indication: MULTIPLE SCLEROSIS
     Dosage: 30 UG QW IM
     Route: 030
     Dates: start: 20030801, end: 20040301
  3. AVONEX [Suspect]
     Indication: MULTIPLE SCLEROSIS
     Dosage: 30 UG QW IM
     Route: 030
  4. TOPROL-XL [Concomitant]
  5. DARVOCET-N 100 [Concomitant]
  6. ASPIRIN [Concomitant]
  7. RESTORIL [Concomitant]
  8. ZOCOR [Concomitant]
  9. ALTACE [Concomitant]

REACTIONS (1)
  - MYOCARDIAL INFARCTION [None]
